FAERS Safety Report 4688957-5 (Version None)
Quarter: 2005Q2

REPORT INFORMATION
  Report Type: 
  Country: None (occurrence: None)
  Receive Date: 20050613
  Receipt Date: 20050523
  Transmission Date: 20051028
  Serious: Yes (Hospitalization)
  Sender: FDA-Public Use
  Company Number: JP-MERCK-0505USA03426

PATIENT
  Age: 20 Year
  Sex: Male

DRUGS (8)
  1. BUSCOPAN [Suspect]
     Indication: MYOCARDITIS
     Route: 042
     Dates: start: 20050502, end: 20050502
  2. MEROPENEM [Suspect]
     Route: 065
     Dates: end: 20050509
  3. CEFMETAZON [Suspect]
     Indication: MYOCARDITIS
     Route: 042
     Dates: start: 20050502, end: 20050503
  4. LOXONIN [Concomitant]
     Indication: PYREXIA
     Route: 065
     Dates: start: 20050501
  5. METILON [Suspect]
     Indication: MYOCARDITIS
     Route: 042
     Dates: start: 20050502, end: 20050502
  6. PEPCID [Suspect]
     Route: 042
     Dates: start: 20050502, end: 20050506
  7. CEFAMEZIN [Suspect]
     Indication: MYOCARDITIS
     Route: 042
     Dates: start: 20050506
  8. PENTCILLIN [Suspect]
     Indication: MYOCARDITIS
     Route: 042
     Dates: start: 20050504, end: 20050506

REACTIONS (5)
  - BLOOD CREATINE PHOSPHOKINASE INCREASED [None]
  - CARDIOMEGALY [None]
  - EOSINOPHILIC MYOCARDITIS [None]
  - PERICARDIAL EFFUSION [None]
  - VENTRICULAR DYSFUNCTION [None]
